FAERS Safety Report 13739062 (Version 1)
Quarter: 2017Q3

REPORT INFORMATION
  Report Type: Spontaneous
  Country: US (occurrence: US)
  Receive Date: 20170710
  Receipt Date: 20170710
  Transmission Date: 20171127
  Serious: Yes (Other)
  Sender: FDA-Public Use
  Company Number: US-SAOL THERAPEUTICS-2017SAO00853

PATIENT
  Sex: Female

DRUGS (4)
  1. BACLOFEN. [Suspect]
     Active Substance: BACLOFEN
     Dosage: 600 UNK, UNK
     Route: 037
     Dates: start: 20170404
  2. BACLOFEN. [Suspect]
     Active Substance: BACLOFEN
     Dosage: 485 ?G, \DAY
     Route: 037
     Dates: start: 20170504
  3. BACLOFEN. [Suspect]
     Active Substance: BACLOFEN
     Dosage: 550 UNK, UNK
     Route: 037
     Dates: start: 201703
  4. BACLOFEN. [Suspect]
     Active Substance: BACLOFEN
     Dosage: 500 ?G, \DAY
     Route: 037
     Dates: start: 20170504

REACTIONS (9)
  - Dizziness [Unknown]
  - Diarrhoea [Unknown]
  - Unevaluable event [Unknown]
  - Tremor [Unknown]
  - Drug withdrawal syndrome [Unknown]
  - Nausea [Unknown]
  - Vomiting [Unknown]
  - Gait disturbance [Not Recovered/Not Resolved]
  - Somnolence [Unknown]

NARRATIVE: CASE EVENT DATE: 201703
